FAERS Safety Report 10559978 (Version 2)
Quarter: 2014Q4

REPORT INFORMATION
  Report Type: Spontaneous
  Country: US (occurrence: None)
  Receive Date: 20141030
  Receipt Date: 20141208
  Transmission Date: 20150529
  Serious: Yes (Disabling, Other)
  Sender: FDA-Public Use
  Company Number: 2014-20588

PATIENT
  Age: 67 Year
  Sex: Male

DRUGS (9)
  1. ATENOLOL (ATENOLOL) [Concomitant]
     Active Substance: ATENOLOL
  2. ASPIRIN (ACETYLSALICYLIC ACID) [Concomitant]
     Active Substance: ASPIRIN
  3. ISOSORBIDE DINITRATE (ISOSORBIDE DINITRATE) [Concomitant]
  4. PLAVIX (CLOPIDOGREL BISULFATE) [Concomitant]
  5. ENALAPRIL MALEATE (ENALAPRIL MALEATE) [Concomitant]
     Active Substance: ENALAPRIL MALEATE
  6. NIASPAN ER (NICOTINIC ACID) [Concomitant]
  7. XANAX [Concomitant]
     Active Substance: ALPRAZOLAM
  8. GEMFIBROZIL (GEMFIBROZIL) [Concomitant]
     Active Substance: GEMFIBROZIL
  9. EYLEA [Suspect]
     Active Substance: AFLIBERCEPT
     Indication: AGE-RELATED MACULAR DEGENERATION
     Dosage: 2 MG MILLIGRAM(S)/0.05 ML, EVERY 2 MONTHS, INTRAOCULAR??
     Route: 031
     Dates: start: 20120223

REACTIONS (6)
  - Bacterial infection [None]
  - Blindness unilateral [None]
  - Vitrectomy [None]
  - Endophthalmitis [None]
  - Enterococcal infection [None]
  - Blindness [None]

NARRATIVE: CASE EVENT DATE: 20141023
